FAERS Safety Report 7316270-6 (Version None)
Quarter: 2011Q1

REPORT INFORMATION
  Report Type: 
  Country: None (occurrence: None)
  Receive Date: 20110225
  Receipt Date: 20110223
  Transmission Date: 20110831
  Serious: Yes (Hospitalization)
  Sender: FDA-Public Use
  Company Number: DE-ROXANE LABORATORIES, INC.-2011-RO-00221RO

PATIENT
  Age: 51 Year
  Sex: Male

DRUGS (7)
  1. RITUXIMAB [Suspect]
     Indication: B-CELL LYMPHOMA
  2. MESNA [Suspect]
     Indication: PROPHYLAXIS
  3. ONDANSETRON [Suspect]
     Indication: PROPHYLAXIS OF NAUSEA AND VOMITING
  4. CYCLOPHOSPHAMIDE [Suspect]
     Indication: B-CELL LYMPHOMA
  5. VINCRISTINE [Suspect]
     Indication: B-CELL LYMPHOMA
  6. PREDNISOLONE [Suspect]
     Indication: B-CELL LYMPHOMA
  7. DOXORUBICIN [Suspect]
     Indication: B-CELL LYMPHOMA

REACTIONS (1)
  - COLITIS ISCHAEMIC [None]
